FAERS Safety Report 4983207-4 (Version None)
Quarter: 2006Q2

REPORT INFORMATION
  Report Type: 
  Country: None (occurrence: None)
  Receive Date: 20060419
  Receipt Date: 20060405
  Transmission Date: 20061013
  Serious: Yes (Death, Hospitalization)
  Sender: FDA-Public Use
  Company Number: 2006-BP-03975RO

PATIENT
  Age: 65 Year
  Sex: Male

DRUGS (3)
  1. PREDNISONE TAB [Suspect]
     Indication: ANTIBIOTIC PROPHYLAXIS
     Dosage: 40 MG BID (40 MG), IV
     Route: 042
  2. METHYLPREDNISOLONE [Suspect]
     Indication: MYCOSIS FUNGOIDES
     Dosage: 8 MG/DAY
  3. INTERFERON (INTERFERON) [Suspect]
     Indication: MYCOSIS FUNGOIDES
     Dosage: 3 MILLION UNITS THREE TIMES/WEEK (3 IN 1 WK)

REACTIONS (8)
  - BLOOD CALCIUM DECREASED [None]
  - BLOOD PHOSPHORUS INCREASED [None]
  - BLOOD URIC ACID INCREASED [None]
  - DYSPNOEA [None]
  - MULTI-ORGAN FAILURE [None]
  - PYREXIA [None]
  - RENAL FAILURE [None]
  - TUMOUR LYSIS SYNDROME [None]
